FAERS Safety Report 20721009 (Version 2)
Quarter: 2022Q3

REPORT INFORMATION
  Report Type: Spontaneous
  Country: US (occurrence: US)
  Receive Date: 20220418
  Receipt Date: 20220704
  Transmission Date: 20221027
  Serious: Yes (Other)
  Sender: FDA-Public Use
  Company Number: US-JNJFOC-20220430927

PATIENT
  Age: 6 Decade
  Sex: Female

DRUGS (20)
  1. ELMIRON [Suspect]
     Active Substance: PENTOSAN POLYSULFATE SODIUM
     Indication: Cystitis interstitial
     Route: 048
     Dates: start: 1997
  2. ELMIRON [Suspect]
     Active Substance: PENTOSAN POLYSULFATE SODIUM
     Dosage: 2 100 MG CAPSULES TWICE A DAY (TOTAL 400 MG/DAY)
     Route: 048
     Dates: start: 2004, end: 201612
  3. ELMIRON [Suspect]
     Active Substance: PENTOSAN POLYSULFATE SODIUM
     Dosage: 1-3 TIMES PER WEEK
     Route: 048
     Dates: start: 201701, end: 2019
  4. PREMPRO [Concomitant]
     Active Substance: ESTROGENS, CONJUGATED\MEDROXYPROGESTERONE ACETATE
     Indication: Hormone therapy
     Dates: start: 2003, end: 2018
  5. TRAMADOL [Concomitant]
     Active Substance: TRAMADOL
     Indication: Cystitis interstitial
     Dates: start: 2004
  6. TRAMADOL [Concomitant]
     Active Substance: TRAMADOL
     Indication: Bladder pain
  7. OXYBUTYNIN [Concomitant]
     Active Substance: OXYBUTYNIN
     Indication: Cystitis interstitial
     Dates: start: 2007
  8. URELLE [Concomitant]
     Active Substance: HYOSCYAMINE SULFATE\METHENAMINE\METHYLENE BLUE\PHENYL SALICYLATE\SODIUM PHOSPHATE, MONOBASIC, MONOHY
     Indication: Cystitis interstitial
     Dates: start: 2007, end: 2015
  9. VESICARE [Concomitant]
     Active Substance: SOLIFENACIN SUCCINATE
     Indication: Cystitis interstitial
     Dates: start: 2011, end: 2016
  10. ZALEPLON [Concomitant]
     Active Substance: ZALEPLON
     Indication: Sleep disorder therapy
     Dates: start: 2014, end: 2016
  11. COMBIPATCH [Concomitant]
     Active Substance: ESTRADIOL\NORETHINDRONE ACETATE
     Indication: Hormone replacement therapy
     Dates: start: 2015
  12. TOPIRAMATE [Concomitant]
     Active Substance: TOPIRAMATE
     Indication: Migraine prophylaxis
     Dates: start: 2009
  13. PRAMIPEXOLE [Concomitant]
     Active Substance: PRAMIPEXOLE
     Indication: Restless legs syndrome
     Dates: start: 2010
  14. DITROPAN XL [Concomitant]
     Active Substance: OXYBUTYNIN CHLORIDE
     Indication: Cystitis interstitial
     Dates: start: 2002, end: 2007
  15. ACTONEL [Concomitant]
     Active Substance: RISEDRONATE SODIUM
     Indication: Osteopenia
     Dates: start: 2003, end: 2007
  16. RELPAX [Concomitant]
     Active Substance: ELETRIPTAN HYDROBROMIDE
     Indication: Migraine
     Dates: start: 2005, end: 2012
  17. MIRAPEX [Concomitant]
     Active Substance: PRAMIPEXOLE DIHYDROCHLORIDE
     Indication: Restless legs syndrome
     Dates: start: 2006, end: 2010
  18. URISED [Concomitant]
     Active Substance: ATROPINE SULFATE\BENZOIC ACID\HYOSCYAMINE\METHENAMINE\METHYLENE BLUE\PHENYL SALICYLATE
     Indication: Cystitis interstitial
     Dates: start: 2006, end: 2007
  19. FOSAMAX [Concomitant]
     Active Substance: ALENDRONATE SODIUM
     Indication: Osteopenia
     Dates: start: 2007, end: 2007
  20. TOPAMAX [Concomitant]
     Active Substance: TOPIRAMATE
     Indication: Migraine prophylaxis
     Dates: start: 2007, end: 2009

REACTIONS (4)
  - Dry age-related macular degeneration [Unknown]
  - Anxiety [Not Recovered/Not Resolved]
  - Depression [Not Recovered/Not Resolved]
  - Off label use [Unknown]

NARRATIVE: CASE EVENT DATE: 20040101
